FAERS Safety Report 21079698 (Version 3)
Quarter: 2022Q3

REPORT INFORMATION
  Report Type: Report from Study
  Country: US (occurrence: US)
  Receive Date: 20220714
  Receipt Date: 20220805
  Transmission Date: 20221027
  Serious: No
  Sender: FDA-Public Use
  Company Number: US-NOVARTISTESTPH-NVSC2022US159313

PATIENT
  Sex: Female

DRUGS (3)
  1. ENTRESTO [Suspect]
     Active Substance: SACUBITRIL\VALSARTAN
     Indication: Product used for unknown indication
     Dosage: UNK
     Route: 065
  2. ENTRESTO [Suspect]
     Active Substance: SACUBITRIL\VALSARTAN
     Dosage: 1 DOSAGE FORM, BID (24/26 MG)
     Route: 048
     Dates: start: 202207
  3. MORPHINE [Concomitant]
     Active Substance: MORPHINE
     Indication: Nerve compression
     Dosage: UNK, UNKNOWN
     Route: 065
     Dates: start: 202205

REACTIONS (10)
  - Hypoacusis [Unknown]
  - Visual impairment [Unknown]
  - Asthenia [Unknown]
  - Nerve compression [Unknown]
  - Neck pain [Unknown]
  - Ear pain [Unknown]
  - Arthralgia [Unknown]
  - Pain [Unknown]
  - Insomnia [Unknown]
  - Gait disturbance [Unknown]
